FAERS Safety Report 20646534 (Version 2)
Quarter: 2022Q1

REPORT INFORMATION
  Report Type: Spontaneous
  Country: US (occurrence: US)
  Receive Date: 20220329
  Receipt Date: 20220330
  Transmission Date: 20220423
  Serious: Yes (Other)
  Sender: FDA-Public Use
  Company Number: US-SA-SAC20220328000176

PATIENT
  Age: 72 Year
  Sex: Male

DRUGS (1)
  1. DUPIXENT [Suspect]
     Active Substance: DUPILUMAB
     Indication: Myelodysplastic syndrome
     Dosage: 300 MG, QOW
     Route: 058
     Dates: start: 20220316

REACTIONS (11)
  - Hallucination [Recovering/Resolving]
  - Fall [Unknown]
  - Abnormal dreams [Recovering/Resolving]
  - Dysstasia [Unknown]
  - Fatigue [Recovering/Resolving]
  - Skin abrasion [Recovering/Resolving]
  - Contusion [Unknown]
  - Dyspnoea [Recovering/Resolving]
  - Incontinence [Unknown]
  - Fall [Recovering/Resolving]
  - Product use in unapproved indication [Unknown]

NARRATIVE: CASE EVENT DATE: 20220316
